FAERS Safety Report 9655320 (Version 2)
Quarter: 2013Q4

REPORT INFORMATION
  Report Type: Spontaneous
  Country: US (occurrence: US)
  Receive Date: 20131029
  Receipt Date: 20131029
  Transmission Date: 20140711
  Serious: No
  Sender: FDA-Public Use
  Company Number: US-PURDUE-USA-2010-0048125

PATIENT
  Sex: Female

DRUGS (4)
  1. OXYCONTIN (NDA 22-272) [Suspect]
     Indication: PAIN
     Dosage: 40 MG, TID
     Dates: start: 201011
  2. OXYCONTIN (NDA 22-272) [Suspect]
     Indication: NEURALGIA
     Dosage: 80 MG, TID
     Dates: start: 201011
  3. OXYCONTIN (NDA 22-272) [Suspect]
     Dosage: 40 MG, DAILY
     Route: 048
     Dates: start: 20100920
  4. OXYCONTIN (NDA 22-272) [Suspect]
     Dosage: 80 MG, Q8H
     Route: 048
     Dates: start: 20100920

REACTIONS (9)
  - Lid sulcus deepened [Unknown]
  - Gastric dilatation [Unknown]
  - Abdominal distension [Recovered/Resolved]
  - Insomnia [Recovered/Resolved]
  - Dehydration [Unknown]
  - Vomiting [Recovered/Resolved]
  - Headache [Unknown]
  - Nausea [Not Recovered/Not Resolved]
  - Drug effect decreased [Not Recovered/Not Resolved]
